FAERS Safety Report 15412304 (Version 1)
Quarter: 2018Q3

REPORT INFORMATION
  Report Type: Report from Study
  Country: US (occurrence: US)
  Receive Date: 20180921
  Receipt Date: 20180921
  Transmission Date: 20181010
  Serious: Yes (Other)
  Sender: FDA-Public Use
  Company Number: US-ROCHE-2185620

PATIENT
  Age: 36 Year
  Sex: Female

DRUGS (3)
  1. OCREVUS [Suspect]
     Active Substance: OCRELIZUMAB
     Indication: PRIMARY PROGRESSIVE MULTIPLE SCLEROSIS
     Dosage: ONGOING: YES
     Route: 042
     Dates: start: 20180128
  2. BENADRYL [Concomitant]
     Active Substance: DIPHENHYDRAMINE HYDROCHLORIDE
     Dosage: ONGOING: YES
     Route: 065
  3. OCREVUS [Suspect]
     Active Substance: OCRELIZUMAB
     Dosage: SIX MONTHLY DOSE
     Route: 042
     Dates: start: 20180730

REACTIONS (7)
  - Tremor [Unknown]
  - Pruritus [Unknown]
  - Hyperhidrosis [Unknown]
  - Blister [Unknown]
  - Alopecia [Unknown]
  - Asthenia [Unknown]
  - Tinea infection [Unknown]

NARRATIVE: CASE EVENT DATE: 201806
